FAERS Safety Report 15839237 (Version 3)
Quarter: 2019Q1

REPORT INFORMATION
  Report Type: Spontaneous
  Country: CY (occurrence: CY)
  Receive Date: 20190117
  Receipt Date: 20190205
  Transmission Date: 20190417
  Serious: Yes (Death, Other)
  Sender: FDA-Public Use
  Company Number: CY-ELI_LILLY_AND_COMPANY-CY201901006519

PATIENT
  Age: 70 Year
  Sex: Male

DRUGS (3)
  1. PACLITAXEL. [Suspect]
     Active Substance: PACLITAXEL
     Indication: GASTROINTESTINAL CANCER METASTATIC
     Dosage: UNK, UNKNOWN
     Route: 065
  2. CYRAMZA [Suspect]
     Active Substance: RAMUCIRUMAB
     Dosage: UNK, CYCLICAL
     Route: 065
  3. CYRAMZA [Suspect]
     Active Substance: RAMUCIRUMAB
     Indication: GASTROINTESTINAL CARCINOMA
     Dosage: UNK, CYCLICAL
     Route: 065

REACTIONS (6)
  - Dyspnoea [Unknown]
  - Anal haemorrhage [Unknown]
  - Platelet count decreased [Unknown]
  - Haemorrhage [Unknown]
  - Epistaxis [Unknown]
  - Haematemesis [Fatal]
